FAERS Safety Report 9343667 (Version 2)
Quarter: 2014Q1

REPORT INFORMATION
  Report Type: Report from Study
  Country: GB (occurrence: GB)
  Receive Date: 20130612
  Receipt Date: 20140213
  Transmission Date: 20141002
  Serious: Yes (Other)
  Sender: FDA-Public Use
  Company Number: GB-BAYER-2013-069741

PATIENT
  Age: 50 Year
  Sex: Male

DRUGS (1)
  1. BETAFERON [Suspect]
     Indication: MULTIPLE SCLEROSIS
     Dosage: 250 ?G, QOD
     Route: 058

REACTIONS (5)
  - Multiple sclerosis relapse [None]
  - Multiple sclerosis relapse [None]
  - Drug ineffective [None]
  - Pain [None]
  - Neuromyopathy [None]
